FAERS Safety Report 4336272-1 (Version None)
Quarter: 2004Q2

REPORT INFORMATION
  Report Type: 
  Country: None (occurrence: None)
  Receive Date: 20040407
  Receipt Date: 20040323
  Transmission Date: 20050107
  Serious: Yes (Hospitalization)
  Sender: FDA-Public Use
  Company Number: USA040156095

PATIENT
  Age: 84 Year
  Sex: Female

DRUGS (10)
  1. FORTEO [Suspect]
     Indication: OSTEOPOROSIS
     Dosage: 20 UG/1 DAY
     Dates: start: 20031201
  2. CELEXA [Concomitant]
  3. PREMARIN [Concomitant]
  4. SYNTHROID [Concomitant]
  5. PREDNISONE [Concomitant]
  6. MULTIVITAMIN [Concomitant]
  7. POTASSIUM [Concomitant]
  8. CALCIUM [Concomitant]
  9. ASPIRIN [Concomitant]
  10. KLOR-CON [Concomitant]

REACTIONS (9)
  - ABDOMINAL DISCOMFORT [None]
  - ANGIOPATHY [None]
  - ANOREXIA [None]
  - ARTERIAL BRUIT [None]
  - DIARRHOEA [None]
  - GASTROENTERITIS VIRAL [None]
  - HYPERTENSION [None]
  - NAUSEA [None]
  - VOMITING [None]
